FAERS Safety Report 19812119 (Version 4)
Quarter: 2022Q2

REPORT INFORMATION
  Report Type: Spontaneous
  Country: IT (occurrence: IT)
  Receive Date: 20210909
  Receipt Date: 20220517
  Transmission Date: 20220721
  Serious: Yes (Death, Other)
  Sender: FDA-Public Use
  Company Number: IT-CELLTRION HEALTHCARE HUNGARY KFT-2021IT003179

PATIENT

DRUGS (38)
  1. BENDAMUSTINE HYDROCHLORIDE [Suspect]
     Active Substance: BENDAMUSTINE HYDROCHLORIDE
     Indication: Diffuse large B-cell lymphoma stage III
     Dosage: UNK, SECOND LINE I-CT (R-BENDAMUSTINE)
     Route: 065
  2. BENDAMUSTINE HYDROCHLORIDE [Suspect]
     Active Substance: BENDAMUSTINE HYDROCHLORIDE
     Dosage: UNK, 3RD LINE I-CT
  3. OXALIPLATIN [Suspect]
     Active Substance: OXALIPLATIN
     Indication: Diffuse large B-cell lymphoma stage IV
     Dosage: 2ND LINE TREATMENT (R-DHAOX);3RD LINE TREATMENT (R-GEMOX)
  4. GEMCITABINE [Suspect]
     Active Substance: GEMCITABINE
     Indication: Diffuse large B-cell lymphoma stage IV
     Dosage: 3RD LINE TREATMENT (R-GEMOX)
  5. RITUXIMAB [Suspect]
     Active Substance: RITUXIMAB
     Indication: Diffuse large B-cell lymphoma stage IV
     Dosage: UNK, FIRST LINE I-CT (R-DHAP X 2)
     Route: 065
  6. RITUXIMAB [Suspect]
     Active Substance: RITUXIMAB
     Indication: Diffuse large B-cell lymphoma stage III
     Dosage: UNK, 3RD LINE TREATMENT (R-CVP)
  7. RITUXIMAB [Suspect]
     Active Substance: RITUXIMAB
     Dosage: UNK, 2ND LINE TREATMENT (BR)
  8. RITUXIMAB [Suspect]
     Active Substance: RITUXIMAB
     Dosage: UNK
  9. RITUXIMAB [Suspect]
     Active Substance: RITUXIMAB
     Dosage: UNK, 3RD LINE TREATMENT (R-GEMOX)
  10. RITUXIMAB [Suspect]
     Active Substance: RITUXIMAB
     Dosage: UNK, 2ND LINE TREATMENT (R-DHAOX)
  11. RITUXIMAB [Suspect]
     Active Substance: RITUXIMAB
     Dosage: UNK, 1ST LINE TREATMENT (R-CHOP)
  12. DEXAMETHASONE [Suspect]
     Active Substance: DEXAMETHASONE
     Indication: Diffuse large B-cell lymphoma stage IV
     Dosage: FIRST LINE I-CT (R-DHAP X 2)
     Route: 065
  13. DEXAMETHASONE [Suspect]
     Active Substance: DEXAMETHASONE
     Dosage: 2ND LINE TREATMENT (R-DHAOX)
  14. METHOTREXATE [Suspect]
     Active Substance: METHOTREXATE
     Indication: Diffuse large B-cell lymphoma
     Dosage: UNK, 3RD LINE TREATMENT (VIM)
  15. CYTARABINE [Suspect]
     Active Substance: CYTARABINE
     Indication: Diffuse large B-cell lymphoma stage IV
     Dosage: FIRST LINE I-CT (R-DHAP X 2)
     Route: 065
  16. CYTARABINE [Suspect]
     Active Substance: CYTARABINE
     Dosage: 2ND LINE TREATMENT (R-DHAOX)
  17. CISPLATIN [Suspect]
     Active Substance: CISPLATIN
     Indication: Diffuse large B-cell lymphoma stage IV
     Dosage: FIRST LINE I-CT (R-DHAP X 2)
     Route: 065
  18. IFOSFAMIDE [Suspect]
     Active Substance: IFOSFAMIDE
     Indication: Diffuse large B-cell lymphoma stage IV
     Dosage: UNK, 3RD LINE TREATMENT (VIM)
  19. ETOPOSIDE [Suspect]
     Active Substance: ETOPOSIDE
     Indication: Diffuse large B-cell lymphoma stage III
     Dosage: UNK, 2ND LINE I-CT
  20. ETOPOSIDE [Suspect]
     Active Substance: ETOPOSIDE
     Dosage: UNK, 3RD LINE TREATMENT (VIM)
  21. LEDIPASVIR [Suspect]
     Active Substance: LEDIPASVIR
     Indication: Hepatitis C
     Dosage: UNK
  22. MABTHERA [Suspect]
     Active Substance: RITUXIMAB
     Indication: Diffuse large B-cell lymphoma stage IV
     Dosage: UNK, 2ND LINE TREATMENT (R-DHAOX)UNK
  23. MABTHERA [Suspect]
     Active Substance: RITUXIMAB
     Indication: Diffuse large B-cell lymphoma stage III
     Dosage: UNK, 1ST LINE TREATMENT (R-CHOP)
  24. MABTHERA [Suspect]
     Active Substance: RITUXIMAB
     Dosage: UNK, 3RD LINE TREATMENT (R-GEMOX)UNK
  25. MABTHERA [Suspect]
     Active Substance: RITUXIMAB
     Dosage: UNK, FIRST LINE I-CT (R-DHAP X 2)UNK
  26. MABTHERA [Suspect]
     Active Substance: RITUXIMAB
     Dosage: UNK, SECOND LINE I-CT (R-BENDAMUSTINE)
  27. RITUXIMAB [Suspect]
     Active Substance: RITUXIMAB
     Indication: Diffuse large B-cell lymphoma stage III
     Dosage: UNK, 3RD LINE TREATMENT (R-CVP)
  28. CYCLOPHOSPHAMIDE\DOXORUBICIN\PREDNISONE\VINCRISTINE [Suspect]
     Active Substance: CYCLOPHOSPHAMIDE\DOXORUBICIN\PREDNISONE\VINCRISTINE
     Indication: Diffuse large B-cell lymphoma stage III
     Dosage: UNK, 1ST LINE TREATMENT (R-CHOP)
  29. SOFOSBUVIR [Concomitant]
     Active Substance: SOFOSBUVIR
     Indication: Hepatitis C
     Dosage: SEQUENTIAL TO SECOND-LINE I-CT
  30. VELPATASVIR [Concomitant]
     Active Substance: VELPATASVIR
     Indication: Hepatitis C
     Dosage: SEQUENTIAL TO SECOND-LINE I-CT
  31. DACLATASVIR\SOFOSBUVIR [Concomitant]
     Active Substance: DACLATASVIR\SOFOSBUVIR
     Indication: Hepatitis C
     Dosage: UNK, SEQ. (2ND LINE)
  32. LEDIPASVIR\SOFOSBUVIR [Concomitant]
     Active Substance: LEDIPASVIR\SOFOSBUVIR
     Indication: Hepatitis C
     Dosage: UNK
  33. IFOSFAMIDE [Suspect]
     Active Substance: IFOSFAMIDE
  34. IFOSFAMIDE [Suspect]
     Active Substance: IFOSFAMIDE
  35. MESNA [Suspect]
     Active Substance: MESNA
  36. MESNA [Suspect]
     Active Substance: MESNA
  37. MITOXANTRONE [Suspect]
     Active Substance: MITOXANTRONE HYDROCHLORIDE
  38. MITOXANTRONE [Suspect]
     Active Substance: MITOXANTRONE HYDROCHLORIDE

REACTIONS (4)
  - Pneumonia [Fatal]
  - Disease progression [Fatal]
  - Diffuse large B-cell lymphoma recurrent [Unknown]
  - Therapy partial responder [Unknown]
